FAERS Safety Report 16765174 (Version 1)
Quarter: 2019Q3

REPORT INFORMATION
  Report Type: Report from Study
  Country: None (occurrence: CA)
  Receive Date: 20190903
  Receipt Date: 20190903
  Transmission Date: 20191005
  Serious: Yes (Other)
  Sender: FDA-Public Use
  Company Number: CA-ABBVIE-19K-028-2908071-00

PATIENT
  Age: 51 Year
  Sex: Male

DRUGS (1)
  1. HUMIRA [Suspect]
     Active Substance: ADALIMUMAB
     Indication: COLITIS ULCERATIVE
     Route: 058
     Dates: start: 20140627

REACTIONS (4)
  - Post procedural discomfort [Recovering/Resolving]
  - Acne [Not Recovered/Not Resolved]
  - Hernia [Recovering/Resolving]
  - Haemorrhoids [Not Recovered/Not Resolved]

NARRATIVE: CASE EVENT DATE: 2019
